FAERS Safety Report 11037408 (Version 1)
Quarter: 2015Q2

REPORT INFORMATION
  Report Type: Spontaneous
  Country: US (occurrence: None)
  Receive Date: 20150415
  Receipt Date: 20150415
  Transmission Date: 20150821
  Serious: Yes (Disabling)
  Sender: FDA-Public Use
  Company Number: None

PATIENT
  Age: 60 Year
  Sex: Female

DRUGS (20)
  1. CANE [Concomitant]
  2. ZOLOFT [Concomitant]
     Active Substance: SERTRALINE HYDROCHLORIDE
  3. CARVEDILOL. [Concomitant]
     Active Substance: CARVEDILOL
  4. LIPITOR [Concomitant]
     Active Substance: ATORVASTATIN CALCIUM
  5. HUMOLOG [Concomitant]
  6. IBUPROPHEN [Concomitant]
     Active Substance: IBUPROFEN
  7. FLEXERIL [Concomitant]
     Active Substance: CYCLOBENZAPRINE HYDROCHLORIDE
  8. NOVOLOG [Concomitant]
     Active Substance: INSULIN ASPART
  9. C-PAP MACHINE [Concomitant]
     Active Substance: DEVICE
  10. AMBIEN [Concomitant]
     Active Substance: ZOLPIDEM TARTRATE
  11. RAMIPRIL. [Concomitant]
     Active Substance: RAMIPRIL
  12. HYDROCODONE [Concomitant]
     Active Substance: HYDROCODONE
  13. CALCIUM CHEWS [Concomitant]
  14. JANUVIA [Concomitant]
     Active Substance: SITAGLIPTIN PHOSPHATE
  15. CELEBREX [Concomitant]
     Active Substance: CELECOXIB
  16. INVOKANA [Suspect]
     Active Substance: CANAGLIFLOZIN
     Indication: DIABETES MELLITUS
     Dosage: 1  ONCE DAILY  TAKEN BY MOUTH
     Route: 048
     Dates: start: 20150202, end: 20150302
  17. ALBUTEROL. [Concomitant]
     Active Substance: ALBUTEROL
  18. ULTRAM [Concomitant]
     Active Substance: TRAMADOL HYDROCHLORIDE
  19. LASIX [Concomitant]
     Active Substance: FUROSEMIDE
  20. TOPICAL [Concomitant]

REACTIONS (4)
  - Arthralgia [None]
  - Polydipsia [None]
  - Walking aid user [None]
  - Activities of daily living impaired [None]

NARRATIVE: CASE EVENT DATE: 20150209
